FAERS Safety Report 17488998 (Version 3)
Quarter: 2020Q1

REPORT INFORMATION
  Report Type: Spontaneous
  Country: US (occurrence: US)
  Receive Date: 20200303
  Receipt Date: 20200309
  Transmission Date: 20200409
  Serious: Yes (Other)
  Sender: FDA-Public Use
  Company Number: US-GLAXOSMITHKLINE-US2020GSK037461

PATIENT
  Age: 38 Year
  Sex: Male

DRUGS (16)
  1. GABAPENTIN. [Concomitant]
     Active Substance: GABAPENTIN
     Indication: PRODUCT USED FOR UNKNOWN INDICATION
     Dosage: 1800 MG (600 MG TWICE DAILY + 1200 MG AT BEDTIME)
     Route: 048
  2. BACLOFEN. [Concomitant]
     Active Substance: BACLOFEN
     Indication: PRODUCT USED FOR UNKNOWN INDICATION
     Dosage: UNK
  3. FISH OIL [Concomitant]
     Active Substance: FISH OIL
     Indication: PRODUCT USED FOR UNKNOWN INDICATION
     Dosage: UNK
  4. CLOZAPINE. [Interacting]
     Active Substance: CLOZAPINE
     Indication: SCHIZOAFFECTIVE DISORDER BIPOLAR TYPE
  5. BUPROPION SR [Interacting]
     Active Substance: BUPROPION HYDROCHLORIDE
     Indication: SMOKING CESSATION THERAPY
     Dosage: 150 MG, QD (IN MORNING)
     Route: 048
  6. PAROXETINE. [Concomitant]
     Active Substance: PAROXETINE
     Indication: AFFECTIVE DISORDER
     Dosage: 20 MG, QD
     Route: 048
  7. BUPROPION SR [Interacting]
     Active Substance: BUPROPION HYDROCHLORIDE
     Dosage: 150 MG, BID
     Route: 048
  8. VARENICLINE [Suspect]
     Active Substance: VARENICLINE
     Indication: SMOKING CESSATION THERAPY
     Dosage: UNK
  9. PANTOPRAZOLE [Concomitant]
     Active Substance: PANTOPRAZOLE
     Indication: PRODUCT USED FOR UNKNOWN INDICATION
     Dosage: UNK
  10. ROPINIROLE. [Concomitant]
     Active Substance: ROPINIROLE
     Indication: RESTLESS LEGS SYNDROME
     Dosage: UNK
  11. BENZTROPINE. [Concomitant]
     Active Substance: BENZTROPINE
     Indication: DROOLING
     Dosage: 2 MG, QD (AT BEDTIME)
     Route: 048
  12. PROPRANOLOL [Concomitant]
     Active Substance: PROPRANOLOL HYDROCHLORIDE
     Indication: AKATHISIA
     Dosage: 20 MG, BID
     Route: 048
  13. CLOZAPINE. [Interacting]
     Active Substance: CLOZAPINE
     Indication: PSYCHOTIC DISORDER
     Dosage: 550 MG (50 MG IN MORNING + 500 MG AT BEDTIME)
     Route: 048
  14. PRAZOSIN. [Concomitant]
     Active Substance: PRAZOSIN
     Indication: NIGHTMARE
     Dosage: 12 MG, QD (AT BEDTIME)
     Route: 048
  15. METHOCARBAMOL. [Concomitant]
     Active Substance: METHOCARBAMOL
     Indication: PRODUCT USED FOR UNKNOWN INDICATION
     Dosage: UNK
  16. NICOTINE. [Suspect]
     Active Substance: NICOTINE
     Indication: SMOKING CESSATION THERAPY
     Dosage: UNK

REACTIONS (3)
  - Drug ineffective [Unknown]
  - Epilepsy [Recovered/Resolved]
  - Drug interaction [Unknown]
